FAERS Safety Report 4782897-9 (Version None)
Quarter: 2005Q3

REPORT INFORMATION
  Report Type: 
  Country: None (occurrence: None)
  Receive Date: 20050928
  Receipt Date: 20050928
  Transmission Date: 20060218
  Serious: Yes (Life-Threatening)
  Sender: FDA-Public Use
  Company Number: None

PATIENT
  Age: 59 Year
  Sex: Female
  Weight: 80.7403 kg

DRUGS (4)
  1. SEROQUEL [Suspect]
     Indication: ANXIETY
     Dosage: 25 MG. 1 TO 4 FOR ANXIETY PO
     Route: 048
     Dates: start: 20020901, end: 20050927
  2. SEROQUEL [Suspect]
     Indication: SLEEP DISORDER
     Dosage: 25 MG. 1 TO 4 FOR ANXIETY PO
     Route: 048
     Dates: start: 20020901, end: 20050927
  3. SEROQUEL [Suspect]
     Indication: ANXIETY
     Dosage: 100 MG. 1 AT BEDTIME PO
     Route: 048
     Dates: start: 20020901, end: 20050927
  4. SEROQUEL [Suspect]
     Indication: SLEEP DISORDER
     Dosage: 100 MG. 1 AT BEDTIME PO
     Route: 048
     Dates: start: 20020901, end: 20050927

REACTIONS (2)
  - GLYCOSYLATED HAEMOGLOBIN INCREASED [None]
  - INSULIN-REQUIRING TYPE II DIABETES MELLITUS [None]
